FAERS Safety Report 5356768-3 (Version None)
Quarter: 2007Q2

REPORT INFORMATION
  Report Type: 
  Country: None (occurrence: None)
  Receive Date: 20070614
  Receipt Date: 20060821
  Transmission Date: 20071010
  Serious: No
  Sender: FDA-Public Use
  Company Number: US-ASTRAZENECA-2006UW15213

PATIENT
  Age: 80 Year
  Sex: Male
  Weight: 81.8 kg

DRUGS (2)
  1. ATACAND [Suspect]
     Route: 048
  2. HYDROCHLOROTHIAZIDE [Concomitant]
     Dates: start: 20060501, end: 20060701

REACTIONS (1)
  - PAIN IN EXTREMITY [None]
